FAERS Safety Report 7765044-0 (Version None)
Quarter: 2011Q3

REPORT INFORMATION
  Report Type: 
  Country: None (occurrence: None)
  Receive Date: 20110921
  Receipt Date: 20110912
  Transmission Date: 20111222
  Serious: Yes (Hospitalization)
  Sender: FDA-Public Use
  Company Number: UA-BAYER-2011-088045

PATIENT
  Sex: Female
  Weight: 0.907 kg

DRUGS (4)
  1. YAZ [Suspect]
     Dosage: UNK
     Route: 064
  2. YAZ [Suspect]
     Dosage: UNK
  3. YAZ [Suspect]
     Dosage: UNK
  4. YAZ [Suspect]
     Dosage: UNK
     Route: 064

REACTIONS (1)
  - SMALL FOR DATES BABY [None]
